FAERS Safety Report 6670275-7 (Version None)
Quarter: 2010Q2

REPORT INFORMATION
  Report Type: 
  Country: None (occurrence: None)
  Receive Date: 20100405
  Receipt Date: 20100322
  Transmission Date: 20101027
  Serious: Yes (Other)
  Sender: FDA-Public Use
  Company Number: 007659

PATIENT
  Sex: Female
  Weight: 60 kg

DRUGS (5)
  1. KEPPRA [Suspect]
     Indication: EPILEPSY
     Dosage: SEE IMAGE
     Dates: start: 20080801, end: 20090925
  2. KEPPRA [Suspect]
     Indication: EPILEPSY
     Dosage: SEE IMAGE
     Dates: start: 20090925
  3. LAMOTRIGINE [Suspect]
     Indication: EPILEPSY
     Dosage: 75 UNITS; UNSPECIFIED AS USED; 150 UNITS TOTAL DAILY DOSE, ORAL
     Route: 048
     Dates: start: 20080801, end: 20090915
  4. TEGRETOL [Suspect]
     Indication: EPILEPSY
     Dosage: SEE IMAGE
     Dates: start: 20080801, end: 20090930
  5. TEGRETOL [Suspect]
     Indication: EPILEPSY
     Dosage: SEE IMAGE
     Dates: start: 20090930

REACTIONS (2)
  - DRUG EXPOSURE DURING PREGNANCY [None]
  - PREGNANCY ON ORAL CONTRACEPTIVE [None]
